FAERS Safety Report 12115457 (Version 3)
Quarter: 2016Q2

REPORT INFORMATION
  Report Type: Spontaneous
  Country: US (occurrence: US)
  Receive Date: 20160225
  Receipt Date: 20160419
  Transmission Date: 20160815
  Serious: Yes (Other)
  Sender: FDA-Public Use
  Company Number: US-ACORDA-ACO_121699_2016

PATIENT
  Sex: Female

DRUGS (4)
  1. AMPYRA [Suspect]
     Active Substance: DALFAMPRIDINE
     Indication: MULTIPLE SCLEROSIS
  2. CYMBALTA [Concomitant]
     Active Substance: DULOXETINE HYDROCHLORIDE
     Indication: HYPOAESTHESIA
     Dosage: 60 MG, QD
     Route: 048
     Dates: start: 201503
  3. LYRICA [Concomitant]
     Active Substance: PREGABALIN
     Indication: HYPOAESTHESIA
     Dosage: 300 MG, BID
     Route: 048
     Dates: start: 201503
  4. FIORICET [Concomitant]
     Active Substance: ACETAMINOPHEN\BUTALBITAL\CAFFEINE
     Indication: HEADACHE
     Dosage: 325 MG, Q 4HRS PRN
     Route: 048
     Dates: start: 201503

REACTIONS (14)
  - Headache [Unknown]
  - Gallbladder disorder [Unknown]
  - Drug ineffective [Unknown]
  - Epilepsy [Unknown]
  - Facial bones fracture [Unknown]
  - Jaw fracture [Unknown]
  - Depression [Unknown]
  - Lower limb fracture [Unknown]
  - Upper limb fracture [Unknown]
  - Fibromyalgia [Unknown]
  - Head injury [Unknown]
  - Tension headache [Unknown]
  - Chronic obstructive pulmonary disease [Unknown]
  - Migraine [Unknown]
